FAERS Safety Report 8219696-1 (Version None)
Quarter: 2012Q1

REPORT INFORMATION
  Report Type: 
  Country: None (occurrence: None)
  Receive Date: 20120319
  Receipt Date: 20120312
  Transmission Date: 20120608
  Serious: Yes (Life-Threatening, Hospitalization)
  Sender: FDA-Public Use
  Company Number: US-ROCHE-1049123

PATIENT
  Age: 75 Year
  Sex: Female
  Weight: 62 kg

DRUGS (12)
  1. AVASTIN [Suspect]
     Indication: CARCINOID TUMOUR
     Dosage: 15 MG/KG IV OVER 30-90 MINUTES ON DAY 1
     Route: 042
     Dates: start: 20101020, end: 20111102
  2. CALCIUM CARBONATE [Concomitant]
  3. ASPIRIN [Concomitant]
  4. ENALAPRIL MALEATE [Concomitant]
  5. AMLODIPINE [Concomitant]
  6. FEXOFENADINE [Concomitant]
  7. LOPERAMIDE [Concomitant]
  8. OCTREOTIDE [Suspect]
     Indication: CARCINOID TUMOUR
     Dosage: SQ,DAY1,CYCLE 1 ONLY
     Dates: start: 20101020, end: 20111102
  9. NAPROXEN [Concomitant]
  10. OMEPRAZOLE [Concomitant]
  11. OCTREOTIDE [Suspect]
     Dosage: 20 MG IM ON DAY 1
     Route: 030
     Dates: start: 20101020, end: 20111102
  12. MIRTAZAPINE [Concomitant]

REACTIONS (1)
  - HYDROCEPHALUS [None]
